FAERS Safety Report 7530875-9 (Version None)
Quarter: 2011Q2

REPORT INFORMATION
  Report Type: 
  Country: None (occurrence: None)
  Receive Date: 20110608
  Receipt Date: 20110601
  Transmission Date: 20111010
  Serious: Yes (Hospitalization)
  Sender: FDA-Public Use
  Company Number: US-BIOGENIDEC-2011BI020243

PATIENT
  Age: 46 Year
  Sex: Female

DRUGS (9)
  1. LISINOPRIL [Concomitant]
  2. OXYCONTIN [Concomitant]
  3. RESTORIL [Concomitant]
  4. PHENERGAN HCL [Concomitant]
  5. TYSABRI [Suspect]
     Indication: MULTIPLE SCLEROSIS
     Route: 042
     Dates: start: 20110428
  6. OXYCODONE HCL [Concomitant]
  7. PRILOSEC [Concomitant]
  8. VESICARE [Concomitant]
  9. CLONAZEPAM [Concomitant]

REACTIONS (2)
  - COLITIS [None]
  - HAEMORRHAGE [None]
